FAERS Safety Report 24015883 (Version 1)
Quarter: 2024Q2

REPORT INFORMATION
  Report Type: Spontaneous
  Country: PK (occurrence: PK)
  Receive Date: 20240626
  Receipt Date: 20240626
  Transmission Date: 20240716
  Serious: Yes (Death)
  Sender: FDA-Public Use
  Company Number: PK-PFIZER INC-PV202400056768

PATIENT
  Age: 58 Year
  Sex: Male
  Weight: 85 kg

DRUGS (1)
  1. TRAZIMERA [Suspect]
     Active Substance: TRASTUZUMAB-QYYP
     Indication: Gastric cancer
     Dosage: 440 MG, IN 330ML N/S I /V  OVER 60 MIN,  EVERY 3 WEEKS
     Route: 042
     Dates: start: 202404

REACTIONS (2)
  - Death [Fatal]
  - Off label use [Unknown]
